FAERS Safety Report 9425919 (Version 1)
Quarter: 2013Q3

REPORT INFORMATION
  Report Type: Report from Study
  Country: US (occurrence: RU)
  Receive Date: 20130729
  Receipt Date: 20130729
  Transmission Date: 20140515
  Serious: Yes (Death, Hospitalization, Other)
  Sender: FDA-Public Use
  Company Number: US-SANOFI-AVENTIS-2013SA075621

PATIENT
  Age: 62 Year
  Sex: Male
  Weight: 71.5 kg

DRUGS (2)
  1. CABAZITAXEL [Suspect]
     Indication: PROSTATE CANCER
     Dosage: FREQUENCY- ONE IN 21 DAYS
     Route: 042
     Dates: start: 20130709
  2. ANTINEOPLASTIC AGENTS [Suspect]
     Indication: PROSTATE CANCER
     Route: 065

REACTIONS (1)
  - Death [Fatal]
